FAERS Safety Report 13371757 (Version 1)
Quarter: 2017Q1

REPORT INFORMATION
  Report Type: Spontaneous
  Country: RO (occurrence: RO)
  Receive Date: 20170325
  Receipt Date: 20170325
  Transmission Date: 20170429
  Serious: Yes (Life-Threatening, Hospitalization, Other)
  Sender: FDA-Public Use
  Company Number: RO-SUN PHARMACEUTICAL INDUSTRIES LTD-2017RR-136575

PATIENT
  Age: 27 Year
  Sex: Female

DRUGS (1)
  1. ASPIRIN. [Suspect]
     Active Substance: ASPIRIN
     Indication: CARDIOVASCULAR DISORDER
     Dosage: LOW DOSE
     Route: 065

REACTIONS (3)
  - Retroperitoneal haematoma [Recovered/Resolved]
  - Exposure during pregnancy [Recovered/Resolved]
  - Abdominal wall haematoma [Recovered/Resolved]
